FAERS Safety Report 17833795 (Version 1)
Quarter: 2020Q2

REPORT INFORMATION
  Report Type: Spontaneous
  Country: US (occurrence: US)
  Receive Date: 20200528
  Receipt Date: 20200528
  Transmission Date: 20200714
  Serious: No
  Sender: FDA-Public Use
  Company Number: None

PATIENT
  Age: 36 Year
  Sex: Female
  Weight: 105.75 kg

DRUGS (8)
  1. BUPROPRION [Concomitant]
     Active Substance: BUPROPION
  2. BUSPAR [Concomitant]
     Active Substance: BUSPIRONE HYDROCHLORIDE
  3. TOPAMAX [Concomitant]
     Active Substance: TOPIRAMATE
  4. MILK THISTLE [Concomitant]
     Active Substance: DIETARY SUPPLEMENT\HERBALS\MILK THISTLE
  5. AIMOVIG [Suspect]
     Active Substance: ERENUMAB-AOOE
     Indication: MIGRAINE
     Dosage: ?          QUANTITY:1 INJECTION(S);OTHER FREQUENCY:1 TIME PER MONTH;?
     Route: 030
  6. COQ10 [Concomitant]
     Active Substance: UBIDECARENONE
  7. MAGNESIUM [Concomitant]
     Active Substance: MAGNESIUM
  8. B2 [Concomitant]

REACTIONS (2)
  - Gait disturbance [None]
  - Myalgia [None]

NARRATIVE: CASE EVENT DATE: 20200525
